FAERS Safety Report 25392688 (Version 4)
Quarter: 2025Q3

REPORT INFORMATION
  Report Type: Spontaneous
  Country: AU (occurrence: AU)
  Receive Date: 20250603
  Receipt Date: 20250718
  Transmission Date: 20251021
  Serious: Yes (Life-Threatening, Hospitalization, Other)
  Sender: CIPLA
  Company Number: AU-MLMSERVICE-20250522-PI514448-00144-1

PATIENT

DRUGS (11)
  1. FENOFIBRATE [Suspect]
     Active Substance: FENOFIBRATE
     Indication: Dyslipidaemia
     Dosage: 145 MILLIGRAM, QD (FILM COATED TABLET)
     Route: 048
     Dates: start: 20240220, end: 20240224
  2. FENOFIBRATE [Suspect]
     Active Substance: FENOFIBRATE
     Indication: Type 2 diabetes mellitus
     Dosage: 145 MILLIGRAM, QD (RESTARTED ON DAY 2 AND CONTINUED TO DAY 6 (FIVE DOSES))
     Route: 048
  3. FLUVOXAMINE [Concomitant]
     Active Substance: FLUVOXAMINE
     Indication: Type 2 diabetes mellitus
     Dosage: 100 MILLIGRAM, TID (EVERY 8 HOURS)
     Route: 065
  4. FLUVOXAMINE [Concomitant]
     Active Substance: FLUVOXAMINE
     Dosage: UNK, QD
     Route: 065
  5. OLANZAPINE [Concomitant]
     Active Substance: OLANZAPINE
     Indication: Schizophrenia
     Dosage: 10 MILLIGRAM, BID (EVERY 12 HOURS) (20 MILLIGRAM PER DAY)
     Route: 048
  6. SEMAGLUTIDE [Concomitant]
     Active Substance: SEMAGLUTIDE
     Indication: Type 2 diabetes mellitus
     Dosage: 0.5 MILLIGRAM, QWK
     Route: 058
  7. SEMAGLUTIDE [Concomitant]
     Active Substance: SEMAGLUTIDE
     Dosage: 1 MILLIGRAM, QWK
     Route: 058
  8. GLICLAZIDE [Concomitant]
     Active Substance: GLICLAZIDE
     Indication: Type 2 diabetes mellitus
     Dosage: 60 MILLIGRAM, BID (EVERY 12 HOURS) (120 MILLIGRAMS)
     Route: 048
  9. SITAGLIPTIN [Concomitant]
     Active Substance: SITAGLIPTIN
     Indication: Type 2 diabetes mellitus
     Dosage: 50 MILLIGRAM, QD
     Route: 048
  10. METFORMIN [Concomitant]
     Active Substance: METFORMIN HYDROCHLORIDE
     Indication: Type 2 diabetes mellitus
     Dosage: 1000 MILLIGRAM, BID (EVERY 12 HOURS) (2000 MILLIGRAMS PER DAY)
     Route: 048
  11. METFORMIN [Concomitant]
     Active Substance: METFORMIN HYDROCHLORIDE
     Dosage: UNK, QD
     Route: 065

REACTIONS (3)
  - Nephropathy [Recovered/Resolved]
  - Acute kidney injury [Recovered/Resolved]
  - Unadjusted dose administered [Unknown]

NARRATIVE: CASE EVENT DATE: 20240223
